FAERS Safety Report 10073790 (Version 1)
Quarter: 2014Q2

REPORT INFORMATION
  Report Type: Spontaneous
  Country: CA (occurrence: CA)
  Receive Date: 20140411
  Receipt Date: 20140411
  Transmission Date: 20141212
  Serious: Yes (Other)
  Sender: FDA-Public Use
  Company Number: CHPA2014CA004930

PATIENT
  Age: 27 Year
  Sex: Male

DRUGS (1)
  1. NEOCITRAN EXTRA STRENGTH TOTAL SUGAR FREE [Suspect]
     Indication: NASOPHARYNGITIS
     Dosage: UNK, PRN
     Route: 048

REACTIONS (1)
  - Diabetes mellitus [Unknown]
